FAERS Safety Report 24625967 (Version 1)
Quarter: 2024Q4

REPORT INFORMATION
  Report Type: Spontaneous
  Country: US (occurrence: US)
  Receive Date: 20241115
  Receipt Date: 20241115
  Transmission Date: 20250114
  Serious: Yes (Other)
  Sender: ANI
  Company Number: US-ANIPHARMA-2024-US-040501

PATIENT
  Age: 63 Year
  Sex: Female

DRUGS (21)
  1. CORTICOTROPIN [Suspect]
     Active Substance: CORTICOTROPIN
     Indication: Polymyositis
     Dosage: 80 UNITS TWICE A WEEK EVERY SATURDAY AND WEDNESDAY
     Route: 058
     Dates: start: 20240606
  2. HEPARIN [Concomitant]
     Active Substance: HEPARIN SODIUM
  3. IBUPROFEN [Concomitant]
     Active Substance: IBUPROFEN
  4. Irbesartan/ HCTZ [Concomitant]
  5. KETOROLAC [Concomitant]
     Active Substance: KETOROLAC TROMETHAMINE
  6. KRILL OIL [Concomitant]
     Active Substance: DIETARY SUPPLEMENT\KRILL OIL
  7. Loratadine-D [Concomitant]
  8. OCTAGAM IMMUNE GLOBULIN (HUMAN) [Concomitant]
     Active Substance: HUMAN IMMUNOGLOBULIN G
  9. OZEMPIC [Concomitant]
     Active Substance: SEMAGLUTIDE
  10. PREDNISONE [Suspect]
     Active Substance: PREDNISONE
     Dosage: 25 MG DAILY/20 MG DAILY
  11. ARMOUR THYROID [Concomitant]
     Active Substance: THYROID, PORCINE
  12. ACETAMINOPHEN [Concomitant]
     Active Substance: ACETAMINOPHEN
  13. VITAMIN C [Concomitant]
     Active Substance: ASCORBIC ACID
  14. HUMAN IMMUNOGLOBULIN G [Concomitant]
     Active Substance: HUMAN IMMUNOGLOBULIN G
     Dosage: WEEKLY
  15. ALPRAZOLAM [Concomitant]
     Active Substance: ALPRAZOLAM
  16. CLONIDINE [Concomitant]
     Active Substance: CLONIDINE
  17. CYANOCOBALAMIN [Concomitant]
     Active Substance: CYANOCOBALAMIN
  18. DIPHENHYDRAMINE [Concomitant]
     Active Substance: DIPHENHYDRAMINE
  19. FUROSEMIDE [Concomitant]
     Active Substance: FUROSEMIDE
  20. GLUTATHIONE [Concomitant]
     Active Substance: GLUTATHIONE
  21. GRALISE [Concomitant]
     Active Substance: GABAPENTIN

REACTIONS (11)
  - Contraindicated product administered [Not Recovered/Not Resolved]
  - Myopathy [Not Recovered/Not Resolved]
  - Cushingoid [Not Recovered/Not Resolved]
  - Product use in unapproved indication [Not Recovered/Not Resolved]
  - Blood pressure increased [Unknown]
  - Fluid retention [Unknown]
  - Swelling face [Recovered/Resolved]
  - Peripheral swelling [Unknown]
  - Weight increased [Not Recovered/Not Resolved]
  - Fatigue [Unknown]
  - Muscular weakness [Not Recovered/Not Resolved]

NARRATIVE: CASE EVENT DATE: 20240606
